FAERS Safety Report 18227068 (Version 1)
Quarter: 2020Q3

REPORT INFORMATION
  Report Type: Spontaneous
  Country: US (occurrence: US)
  Receive Date: 20200903
  Receipt Date: 20200903
  Transmission Date: 20201103
  Serious: No
  Sender: FDA-Public Use
  Company Number: US-PFIZER INC-2020338114

PATIENT
  Age: 50 Year
  Sex: Female

DRUGS (1)
  1. IBRANCE [Suspect]
     Active Substance: PALBOCICLIB
     Indication: METASTASES TO BONE
     Dosage: 125 MG, CYCLIC (ON DAYS 1 TO 21, FOLLOWED BY 7 DAYS OF REST)
     Route: 048

REACTIONS (3)
  - Oesophageal disorder [Unknown]
  - Dyspepsia [Unknown]
  - Burning sensation [Unknown]

NARRATIVE: CASE EVENT DATE: 201911
